FAERS Safety Report 25112742 (Version 2)
Quarter: 2025Q2

REPORT INFORMATION
  Report Type: Spontaneous
  Country: US (occurrence: US)
  Receive Date: 20250324
  Receipt Date: 20250404
  Transmission Date: 20250717
  Serious: Yes (Life-Threatening, Hospitalization)
  Sender: TEVA
  Company Number: US-TEVA-VS-3311323

PATIENT
  Age: 25 Year
  Sex: Female

DRUGS (5)
  1. BUPROPION [Suspect]
     Active Substance: BUPROPION
     Indication: Depression
     Route: 065
  2. BUPROPION [Suspect]
     Active Substance: BUPROPION
     Indication: Depression
     Route: 065
  3. SERTRALINE [Concomitant]
     Active Substance: SERTRALINE HYDROCHLORIDE
     Indication: Depression
     Route: 065
  4. TRAZODONE [Suspect]
     Active Substance: TRAZODONE HYDROCHLORIDE
     Indication: Depression
     Route: 065
  5. FLUOXETINE [Suspect]
     Active Substance: FLUOXETINE HYDROCHLORIDE
     Indication: Depression
     Route: 065

REACTIONS (14)
  - Unresponsive to stimuli [Recovering/Resolving]
  - Mental status changes [Recovering/Resolving]
  - Hypotension [Recovering/Resolving]
  - Seizure [Recovering/Resolving]
  - Sinus tachycardia [Recovering/Resolving]
  - Treatment noncompliance [Unknown]
  - Apnoea [Recovering/Resolving]
  - Respiratory acidosis [Recovering/Resolving]
  - Somnolence [Unknown]
  - Respiratory depression [Recovering/Resolving]
  - Intentional overdose [Unknown]
  - Areflexia [Recovering/Resolving]
  - Coma [Recovering/Resolving]
  - Toxicity to various agents [Unknown]
